FAERS Safety Report 6524526-X (Version None)
Quarter: 2010Q1

REPORT INFORMATION
  Report Type: 
  Country: None (occurrence: None)
  Receive Date: 20100104
  Receipt Date: 20091224
  Transmission Date: 20100710
  Serious: Yes (Hospitalization)
  Sender: FDA-Public Use
  Company Number: FR-ROCHE-669151

PATIENT
  Sex: Male
  Weight: 75 kg

DRUGS (5)
  1. PEG-INTERFERON ALFA 2A (RO 25-8310) [Suspect]
     Dosage: DRUG NAME REPORTED AS PEGASYS
     Route: 058
     Dates: start: 20090924
  2. RIBAVIRIN [Suspect]
     Route: 048
     Dates: start: 20090924
  3. TRUVADA [Concomitant]
     Dosage: TDD: 245/200 (NO UNIT)
     Dates: start: 20060613
  4. NORVIR [Concomitant]
     Dosage: TDD: 100 (NO UNIT)
     Dates: start: 20020218
  5. REYATAZ [Concomitant]
     Dosage: TDD: 300 (NO UNIT)
     Dates: start: 20040730

REACTIONS (1)
  - HERPES ZOSTER [None]
